FAERS Safety Report 14797709 (Version 1)
Quarter: 2018Q2

REPORT INFORMATION
  Report Type: Spontaneous
  Country: PT (occurrence: PT)
  Receive Date: 20180424
  Receipt Date: 20180424
  Transmission Date: 20180711
  Serious: Yes (Hospitalization)
  Sender: FDA-Public Use
  Company Number: PT-ACCORD-065972

PATIENT
  Age: 29 Year
  Sex: Male

DRUGS (1)
  1. ESCITALOPRAM [Suspect]
     Active Substance: ESCITALOPRAM OXALATE
     Indication: DEPRESSION
     Dosage: 10 MG QD

REACTIONS (5)
  - Vision blurred [Recovering/Resolving]
  - Headache [Recovering/Resolving]
  - Demyelination [Recovering/Resolving]
  - Gait disturbance [Recovering/Resolving]
  - Depression [Recovering/Resolving]
